FAERS Safety Report 21505273 (Version 1)
Quarter: 2022Q4

REPORT INFORMATION
  Report Type: Spontaneous
  Country: DE (occurrence: DE)
  Receive Date: 20221026
  Receipt Date: 20221026
  Transmission Date: 20230113
  Serious: No
  Sender: FDA-Public Use
  Company Number: DE-ALKEM LABORATORIES LIMITED-DE-ALKEM-2022-10351

PATIENT
  Age: 49 Year
  Sex: Male
  Weight: 70 kg

DRUGS (10)
  1. FINGOLIMOD [Suspect]
     Active Substance: FINGOLIMOD
     Indication: Relapsing-remitting multiple sclerosis
     Dosage: 0.5 MILLIGRAM
     Route: 048
     Dates: start: 20201207
  2. FINGOLIMOD [Suspect]
     Active Substance: FINGOLIMOD
     Dosage: 0.5 MILLIGRAM
     Route: 048
     Dates: start: 20210809
  3. FINGOLIMOD [Suspect]
     Active Substance: FINGOLIMOD
     Dosage: 0.5 MILLIGRAM
     Route: 048
     Dates: start: 20220110
  4. BACLOFEN [Concomitant]
     Active Substance: BACLOFEN
     Indication: Muscle spasticity
     Dosage: 10 MILLIGRAM, QD (EVERY 1 DAY)
     Route: 048
     Dates: start: 20200514
  5. Covid-19 Vaccine Astrazeneca (chadox1 ncov-19) [Concomitant]
     Indication: COVID-19 immunisation
     Dosage: 0.5 MILLILITER, QD (EVERY 1 DAY)
     Route: 030
     Dates: start: 20210422, end: 20210422
  6. Covid-19 Vaccine Astrazeneca (chadox1 ncov-19) [Concomitant]
     Dosage: 0.5 MILLILITER, QD (EVERY 1 DAY)
     Route: 030
     Dates: start: 20210701, end: 20210701
  7. HYPERICUM PERFORATUM WHOLE [Concomitant]
     Active Substance: HYPERICUM PERFORATUM WHOLE
     Indication: Sleep disorder
     Dosage: 900 MILLIGRAM, QD (EVERY 1 DAY)
     Route: 048
     Dates: start: 20200514, end: 202012
  8. TYSABRI [Concomitant]
     Active Substance: NATALIZUMAB
     Indication: Multiple sclerosis
     Dosage: 300 MILLIGRAM (EVERY ONE MONTH)
     Route: 042
     Dates: start: 20220607
  9. METHYLPREDNISOLONE [Concomitant]
     Active Substance: METHYLPREDNISOLONE
     Indication: Multiple sclerosis relapse
     Dosage: 1000 MILLIGRAM
     Route: 042
     Dates: start: 20210110, end: 20210112
  10. ZOMIG [Concomitant]
     Active Substance: ZOLMITRIPTAN
     Indication: Migraine
     Dosage: 5 MILLIGRAM, PRN (AS NECESSARY)
     Route: 045
     Dates: start: 20220429

REACTIONS (1)
  - Lymphopenia [Recovered/Resolved]

NARRATIVE: CASE EVENT DATE: 20220304
